FAERS Safety Report 13266480 (Version 1)
Quarter: 2017Q1

REPORT INFORMATION
  Report Type: Report from Study
  Country: None (occurrence: FR)
  Receive Date: 20170223
  Receipt Date: 20170223
  Transmission Date: 20170428
  Serious: Yes (Other)
  Sender: FDA-Public Use
  Company Number: FR-ABBVIE-17P-056-1883795-00

PATIENT
  Age: 67 Year
  Sex: Male

DRUGS (1)
  1. DUODOPA [Suspect]
     Active Substance: CARBIDOPA\LEVODOPA
     Indication: PARKINSON^S DISEASE
     Dosage: AM DOSE 10ML; CONT RATE 5ML/H DAY CONT RATE NIGHT 3ML/H FROM 9 PM-6 AM. BOLUS DOSE OF 1ML.
     Route: 050
     Dates: start: 201605

REACTIONS (1)
  - Weight decreased [Unknown]
